FAERS Safety Report 18877516 (Version 2)
Quarter: 2021Q1

REPORT INFORMATION
  Report Type: Other
  Country: GB (occurrence: GB)
  Receive Date: 20210211
  Receipt Date: 20210330
  Transmission Date: 20210420
  Serious: Yes (Other)
  Sender: FDA-Public Use
  Company Number: GB-ROCHE-2763055

PATIENT
  Age: 17 Year
  Sex: Male

DRUGS (3)
  1. NOVOSEVEN [Suspect]
     Active Substance: COAGULATION FACTOR VIIA RECOMBINANT HUMAN
     Indication: PROPHYLAXIS
     Dosage: 45MCG/KG
     Route: 065
  2. NOVOSEVEN [Suspect]
     Active Substance: COAGULATION FACTOR VIIA RECOMBINANT HUMAN
     Dosage: 60MCG/KG DOSING EVERY 2 ?4 HOURS.
     Route: 065
  3. EMICIZUMAB. [Suspect]
     Active Substance: EMICIZUMAB
     Indication: PROPHYLAXIS
     Route: 065

REACTIONS (1)
  - Sepsis [Unknown]
